FAERS Safety Report 5015019-X (Version None)
Quarter: 2006Q2

REPORT INFORMATION
  Report Type: 
  Country: None (occurrence: None)
  Receive Date: 20060425
  Receipt Date: 20060118
  Transmission Date: 20061013
  Serious: Yes (Hospitalization)
  Sender: FDA-Public Use
  Company Number: WAES 0601USA02318

PATIENT
  Age: 8 Year
  Sex: Female

DRUGS (4)
  1. SINGULAIR [Suspect]
     Indication: ASTHMA
     Dosage: 5 MG/HS/PO
     Route: 048
     Dates: start: 20060115, end: 20060116
  2. ADVAIR DISKUS 100/50 [Concomitant]
  3. SOLU-MEDROL [Concomitant]
  4. XOPENEX [Concomitant]

REACTIONS (2)
  - ADVERSE EVENT [None]
  - RASH [None]
